FAERS Safety Report 25164764 (Version 2)
Quarter: 2025Q2

REPORT INFORMATION
  Report Type: Spontaneous
  Country: US (occurrence: US)
  Receive Date: 20250406
  Receipt Date: 20250510
  Transmission Date: 20250717
  Serious: No
  Sender: SANOFI AVENTIS
  Company Number: US-SANOFI-02471709

PATIENT
  Age: 24 Year
  Sex: Male
  Weight: 125 kg

DRUGS (2)
  1. THYROGEN [Suspect]
     Active Substance: THYROTROPIN ALFA
     Indication: Adjuvant therapy
     Dosage: 0.9 MG/ML, QD
     Route: 030
     Dates: start: 20250401, end: 20250402
  2. THYROGEN [Suspect]
     Active Substance: THYROTROPIN ALFA
     Indication: Papillary thyroid cancer

REACTIONS (1)
  - Expired product administered [Unknown]

NARRATIVE: CASE EVENT DATE: 20250401
